FAERS Safety Report 18506733 (Version 1)
Quarter: 2020Q4

REPORT INFORMATION
  Report Type: Spontaneous
  Country: FR (occurrence: FR)
  Receive Date: 20201116
  Receipt Date: 20201116
  Transmission Date: 20210114
  Serious: Yes (Death, Hospitalization)
  Sender: FDA-Public Use
  Company Number: NVSC2020FR304683

PATIENT
  Sex: Female
  Weight: 2.9 kg

DRUGS (2)
  1. ATARAX [Suspect]
     Active Substance: HYDROXYZINE HYDROCHLORIDE
     Indication: FOETAL EXPOSURE DURING PREGNANCY
     Dosage: MATERNAL DOSE: 25 MG
     Route: 064
     Dates: start: 20200213, end: 20201028
  2. ANAFRANIL [Suspect]
     Active Substance: CLOMIPRAMINE HYDROCHLORIDE
     Indication: FOETAL EXPOSURE DURING PREGNANCY
     Dosage: MATERNAL DOSE: 125 MG,QD
     Route: 064
     Dates: start: 20200213, end: 20201028

REACTIONS (1)
  - Foetal death [Fatal]

NARRATIVE: CASE EVENT DATE: 20201027
